FAERS Safety Report 9040775 (Version 1)
Quarter: 2013Q1

REPORT INFORMATION
  Report Type: Spontaneous
  Country: DE (occurrence: DE)
  Receive Date: 20130129
  Receipt Date: 20130129
  Transmission Date: 20140127
  Serious: Yes (Other)
  Sender: FDA-Public Use
  Company Number: DE-JNJFOC-20130113905

PATIENT
  Age: 73 Year
  Sex: Female
  Weight: 69 kg

DRUGS (13)
  1. XARELTO [Suspect]
     Indication: CEREBROVASCULAR ACCIDENT PROPHYLAXIS
     Route: 048
  2. XARELTO [Suspect]
     Indication: CEREBROVASCULAR ACCIDENT PROPHYLAXIS
     Route: 048
     Dates: start: 20121029
  3. XARELTO [Suspect]
     Indication: ATRIAL FIBRILLATION
     Route: 048
     Dates: start: 20121029
  4. XARELTO [Suspect]
     Indication: ATRIAL FIBRILLATION
     Route: 048
  5. DICLOFENAC [Concomitant]
     Route: 065
  6. SPIRO COMP [Concomitant]
     Route: 065
  7. CLEXANE [Concomitant]
     Route: 065
  8. CLEXANE [Concomitant]
     Route: 065
     Dates: end: 20121030
  9. ACETYLSALICYLIC ACID [Concomitant]
     Route: 065
  10. HYDROCHLOROTHIAZIDE [Concomitant]
     Route: 065
  11. ATORVASTATIN [Concomitant]
     Indication: MYOCARDIAL INFARCTION
     Route: 065
  12. METOPROLOL [Concomitant]
     Indication: MYOCARDIAL INFARCTION
     Route: 065
  13. FUROSEMIDE [Concomitant]
     Route: 065

REACTIONS (2)
  - Cardiac failure [Recovering/Resolving]
  - Tachyarrhythmia [Unknown]
